FAERS Safety Report 15939200 (Version 2)
Quarter: 2019Q1

REPORT INFORMATION
  Report Type: Spontaneous
  Country: US (occurrence: US)
  Receive Date: 20190208
  Receipt Date: 20190214
  Transmission Date: 20190417
  Serious: No
  Sender: FDA-Public Use
  Company Number: US-PFIZER INC-2019053814

PATIENT
  Age: 55 Year

DRUGS (12)
  1. LEVEMIR [Suspect]
     Active Substance: INSULIN DETEMIR
     Dosage: UNK
  2. LYRICA [Suspect]
     Active Substance: PREGABALIN
     Dosage: UNK
  3. DETROL LA [Suspect]
     Active Substance: TOLTERODINE TARTRATE
     Dosage: UNK
  4. LEVEMIR [Suspect]
     Active Substance: INSULIN DETEMIR
     Dosage: UNK, FLEXPEN
  5. NOVOLOG [Suspect]
     Active Substance: INSULIN ASPART
     Dosage: UNK, FLEXPEN
  6. PROAIR HFA [Suspect]
     Active Substance: ALBUTEROL SULFATE
     Dosage: UNK
  7. DETROL [Suspect]
     Active Substance: TOLTERODINE TARTRATE
     Dosage: UNK
  8. PROZAC [Suspect]
     Active Substance: FLUOXETINE HYDROCHLORIDE
     Dosage: UNK
  9. DAKINS FULL [Suspect]
     Active Substance: SODIUM HYPOCHLORITE
     Dosage: UNK
  10. EPIPEN [Suspect]
     Active Substance: EPINEPHRINE
     Dosage: UNK
  11. NOVOLOG [Suspect]
     Active Substance: INSULIN ASPART
     Dosage: UNK, 70/30
  12. PROVENTIL HFA [Suspect]
     Active Substance: ALBUTEROL SULFATE
     Dosage: UNK

REACTIONS (1)
  - Drug hypersensitivity [Unknown]
